FAERS Safety Report 21513935 (Version 1)
Quarter: 2022Q4

REPORT INFORMATION
  Report Type: Spontaneous
  Country: US (occurrence: US)
  Receive Date: 20221027
  Receipt Date: 20221027
  Transmission Date: 20230113
  Serious: Yes (Other)
  Sender: FDA-Public Use
  Company Number: US-Accord-283498

PATIENT
  Age: 65 Year
  Sex: Female

DRUGS (2)
  1. ETOPOSIDE [Suspect]
     Active Substance: ETOPOSIDE
     Indication: Ovarian dysgerminoma stage II
     Dosage: 100 MG/M2 DAYS 1-5 REPEATED EVERY 21 DAYS
     Route: 042
  2. CISPLATIN [Suspect]
     Active Substance: CISPLATIN
     Indication: Ovarian dysgerminoma stage II
     Dosage: 20 MG /M2 ADMINISTERED ON DAYS 1-5 REPEATED EVERY 21 DAYS
     Route: 042

REACTIONS (3)
  - Ototoxicity [Unknown]
  - Neuropathy peripheral [Unknown]
  - Off label use [Unknown]
